FAERS Safety Report 6608963-0 (Version None)
Quarter: 2010Q1

REPORT INFORMATION
  Report Type: 
  Country: None (occurrence: None)
  Receive Date: 20100301
  Receipt Date: 20100217
  Transmission Date: 20100710
  Serious: Yes (Hospitalization)
  Sender: FDA-Public Use
  Company Number: FR-PFIZER INC-2006086156

PATIENT
  Age: 74 Year
  Sex: Female
  Weight: 67 kg

DRUGS (12)
  1. SUNITINIB MALATE [Suspect]
     Indication: RENAL CANCER
     Dosage: 37.5 MG, 1X/DAY
     Route: 048
     Dates: start: 20060501
  2. ALLOPURINOL [Concomitant]
     Dates: start: 20060428
  3. PHYSIOTENS [Concomitant]
     Dosage: UNK
     Dates: start: 20050101
  4. COKENZEN [Concomitant]
     Dosage: UNK
     Dates: start: 19960101, end: 20050101
  5. ZELITREX [Concomitant]
     Dates: start: 20060523
  6. PROPOFAN [Concomitant]
     Dates: start: 20051201
  7. SMECTITE [Concomitant]
     Dates: start: 20060517, end: 20060518
  8. CAPERGYL [Concomitant]
     Dates: start: 20060517, end: 20060518
  9. DI-ANTALVIC [Concomitant]
     Dates: start: 20060517, end: 20060518
  10. CRESTOR [Concomitant]
     Dates: start: 20060517
  11. LANSOPRAZOLE [Concomitant]
     Dates: start: 20060517, end: 20060518
  12. VOLTAREN [Concomitant]
     Dates: start: 20060517, end: 20060518

REACTIONS (1)
  - MALAISE [None]
